FAERS Safety Report 12077791 (Version 7)
Quarter: 2016Q2

REPORT INFORMATION
  Report Type: Spontaneous
  Country: BR (occurrence: BR)
  Receive Date: 20160215
  Receipt Date: 20160401
  Transmission Date: 20160815
  Serious: Yes (Congenital Anomaly, Other)
  Sender: FDA-Public Use
  Company Number: PHHY2016BR018897

PATIENT

DRUGS (3)
  1. DICLOFENAC [Suspect]
     Active Substance: DICLOFENAC
     Indication: FOETAL EXPOSURE DURING PREGNANCY
     Dosage: (MATERNAL DOSE:50 MG)
     Route: 064
  2. INDOMETHACIN. [Suspect]
     Active Substance: INDOMETHACIN
     Indication: FOETAL EXPOSURE DURING PREGNANCY
     Dosage: (MATERNAL DOSE: 100 MG)
     Route: 064
  3. CAFFEINE. [Suspect]
     Active Substance: CAFFEINE
     Indication: FOETAL EXPOSURE DURING PREGNANCY
     Dosage: MOTHER DOSE: 30 MG, UNK
     Route: 064

REACTIONS (6)
  - Ductus arteriosus stenosis foetal [Not Recovered/Not Resolved]
  - Trisomy 21 [Unknown]
  - Pericardial effusion [Not Recovered/Not Resolved]
  - Foetal exposure during pregnancy [Unknown]
  - Dilatation ventricular [Not Recovered/Not Resolved]
  - Heart disease congenital [Unknown]
